FAERS Safety Report 7749454-3 (Version None)
Quarter: 2011Q3

REPORT INFORMATION
  Report Type: 
  Country: None (occurrence: None)
  Receive Date: 20110914
  Receipt Date: 20110906
  Transmission Date: 20111222
  Serious: Yes (Death, Other)
  Sender: FDA-Public Use
  Company Number: JP-GENZYME-FLUD-1001345

PATIENT
  Age: 54 Year
  Sex: Male

DRUGS (6)
  1. CYCLOPHOSPHAMIDE [Suspect]
     Indication: ACUTE MYELOID LEUKAEMIA
  2. FLUDARA [Suspect]
     Indication: CORD BLOOD TRANSPLANT THERAPY
     Dosage: 200 MG/M2, UNK
     Route: 065
  3. CYCLOPHOSPHAMIDE [Suspect]
     Indication: CORD BLOOD TRANSPLANT THERAPY
     Dosage: 50 MG/KG, UNK
     Route: 065
  4. FLUDARA [Suspect]
     Indication: ACUTE MYELOID LEUKAEMIA
  5. TACROLIMUS [Concomitant]
     Indication: PROPHYLAXIS AGAINST GRAFT VERSUS HOST DISEASE
     Dosage: UNK
     Route: 065
  6. METHOTREXATE [Concomitant]
     Indication: PROPHYLAXIS AGAINST GRAFT VERSUS HOST DISEASE
     Dosage: UNK
     Route: 065

REACTIONS (3)
  - HAEMORRHAGE INTRACRANIAL [None]
  - VENOOCCLUSIVE LIVER DISEASE [None]
  - BRAIN HERNIATION [None]
